FAERS Safety Report 15598327 (Version 1)
Quarter: 2018Q4

REPORT INFORMATION
  Report Type: Spontaneous
  Country: US (occurrence: US)
  Receive Date: 20181108
  Receipt Date: 20181108
  Transmission Date: 20190205
  Serious: Yes (Hospitalization)
  Sender: FDA-Public Use
  Company Number: None

PATIENT
  Sex: Female

DRUGS (4)
  1. PRAMIPEXOLE, HYDROXYZ HCL, CELECOXIB [Concomitant]
  2. CETIRIZINE, TRAZODONE, OMEPRAZOLE [Concomitant]
  3. COSENTYX [Suspect]
     Active Substance: SECUKINUMAB
     Indication: PSORIASIS
     Dosage: ?          OTHER FREQUENCY:EVERY FOUR WEEKS;?
     Route: 058
     Dates: start: 20180817
  4. NORTRIPTYLIN, PRAVASTATIN, [Concomitant]

REACTIONS (1)
  - Gallbladder operation [None]
